FAERS Safety Report 7358611-X (Version None)
Quarter: 2011Q1

REPORT INFORMATION
  Report Type: 
  Country: None (occurrence: None)
  Receive Date: 20110317
  Receipt Date: 20110310
  Transmission Date: 20110831
  Serious: Yes (Other)
  Sender: FDA-Public Use
  Company Number: FR-ELI_LILLY_AND_COMPANY-FR201103003265

PATIENT
  Age: 81 Year
  Sex: Female

DRUGS (12)
  1. KALEORID [Concomitant]
  2. BISOPROLOL [Concomitant]
  3. CYMBALTA [Suspect]
     Indication: ANXIETY
     Dosage: 30 MG, DAILY (1/D)
     Route: 048
     Dates: start: 20090425, end: 20090426
  4. EQUANIL [Concomitant]
  5. AERIUS [Concomitant]
  6. LASIX [Concomitant]
  7. KARDEGIC [Concomitant]
  8. RAMIPRIL [Concomitant]
  9. PLAVIX [Concomitant]
  10. CIFLOX [Concomitant]
     Indication: URINARY TRACT INFECTION
     Dosage: 500 MG, DAILY (1/D)
     Route: 048
     Dates: start: 20090425, end: 20090426
  11. CETORNAN [Concomitant]
  12. DISCOTRINE [Concomitant]

REACTIONS (2)
  - HYPOTENSION [None]
  - CYTOLYTIC HEPATITIS [None]
